FAERS Safety Report 9060965 (Version 1)
Quarter: 2013Q1

REPORT INFORMATION
  Report Type: Spontaneous
  Country: US (occurrence: US)
  Receive Date: 20130213
  Receipt Date: 20130213
  Transmission Date: 20140127
  Serious: No
  Sender: FDA-Public Use
  Company Number: US-009507513-1302USA001349

PATIENT
  Sex: Female

DRUGS (2)
  1. IMPLANON [Suspect]
     Indication: CONTRACEPTION
     Dosage: 1 DF, UNK
     Route: 059
  2. IMPLANON [Suspect]
     Dosage: 1 DF, UNK
     Route: 059

REACTIONS (2)
  - Device difficult to use [Unknown]
  - No adverse event [Unknown]
